FAERS Safety Report 18972885 (Version 1)
Quarter: 2021Q1

REPORT INFORMATION
  Report Type: Spontaneous
  Country: US (occurrence: US)
  Receive Date: 20210304
  Receipt Date: 20210304
  Transmission Date: 20210420
  Serious: Yes (Death)
  Sender: FDA-Public Use
  Company Number: None

PATIENT
  Age: 57 Year
  Sex: Male

DRUGS (13)
  1. ZARXIO [Suspect]
     Active Substance: FILGRASTIM-SNDZ
     Indication: COLON CANCER
     Dosage: ?          OTHER DOSE:1 SYR;OTHER FREQUENCY:2DAY ON?14DAY OFF;?
     Route: 058
     Dates: start: 20201124, end: 20210202
  2. OXYCODONE [Concomitant]
     Active Substance: OXYCODONE
  3. PANTOPRAZOLE [Concomitant]
     Active Substance: PANTOPRAZOLE
  4. DICLOFEN POT [Concomitant]
  5. GABAPANTIN [Concomitant]
  6. A?HYDROCORT [Concomitant]
     Active Substance: HYDROCORTISONE SODIUM SUCCINATE
  7. TAMSULOSIN [Concomitant]
     Active Substance: TAMSULOSIN
  8. MECLIZINE [Concomitant]
     Active Substance: MECLIZINE HYDROCHLORIDE
  9. METHIMAZOLE. [Concomitant]
     Active Substance: METHIMAZOLE
  10. PREDNISONE. [Concomitant]
     Active Substance: PREDNISONE
  11. LEVOFLOXACIN. [Concomitant]
     Active Substance: LEVOFLOXACIN
  12. ONDANSETRON [Concomitant]
     Active Substance: ONDANSETRON
  13. AMLODIPINE [Concomitant]
     Active Substance: AMLODIPINE BESYLATE

REACTIONS (1)
  - Death [None]

NARRATIVE: CASE EVENT DATE: 20210202
